FAERS Safety Report 19313442 (Version 3)
Quarter: 2021Q2

REPORT INFORMATION
  Report Type: Report from Study
  Country: US (occurrence: US)
  Receive Date: 20210527
  Receipt Date: 20210614
  Transmission Date: 20210717
  Serious: Yes (Hospitalization, Other)
  Sender: FDA-Public Use
  Company Number: US-EMD SERONO-9215758

PATIENT
  Age: 33 Year
  Sex: Female

DRUGS (6)
  1. REBIF [Suspect]
     Active Substance: INTERFERON BETA-1A
     Indication: MULTIPLE SCLEROSIS
     Route: 058
     Dates: start: 20201231
  2. LAMICTAL [Suspect]
     Active Substance: LAMOTRIGINE
     Indication: MANIA
  3. LAMICTAL [Suspect]
     Active Substance: LAMOTRIGINE
     Indication: ANXIETY
  4. LAMICTAL [Suspect]
     Active Substance: LAMOTRIGINE
     Indication: BIPOLAR DISORDER
  5. REBIF [Suspect]
     Active Substance: INTERFERON BETA-1A
     Route: 058
     Dates: start: 20210101
  6. COVID?19 VACCINE [Concomitant]
     Indication: COVID-19 IMMUNISATION
     Dates: start: 20210414

REACTIONS (11)
  - Stevens-Johnson syndrome [Recovering/Resolving]
  - Bipolar disorder [Not Recovered/Not Resolved]
  - Injection site irritation [Unknown]
  - Injection site pain [Recovering/Resolving]
  - Anxiety [Unknown]
  - Dermatitis atopic [Recovering/Resolving]
  - Injection site bruising [Unknown]
  - Urinary retention [Unknown]
  - Psychological trauma [Unknown]
  - Injection site erythema [Recovering/Resolving]
  - Menstruation irregular [Unknown]

NARRATIVE: CASE EVENT DATE: 202103
